APPROVED DRUG PRODUCT: ALLOPURINOL
Active Ingredient: ALLOPURINOL
Strength: 300MG
Dosage Form/Route: TABLET;ORAL
Application: A211820 | Product #002 | TE Code: AB
Applicant: UNICHEM LABORATORIES LTD
Approved: Mar 12, 2019 | RLD: No | RS: Yes | Type: RX